FAERS Safety Report 6375890-6 (Version None)
Quarter: 2009Q3

REPORT INFORMATION
  Report Type: 
  Country: None (occurrence: None)
  Receive Date: 20090924
  Receipt Date: 20090914
  Transmission Date: 20100115
  Serious: Yes (Death, Hospitalization, Other)
  Sender: FDA-Public Use
  Company Number: US-BAXTER-2009BH014055

PATIENT
  Sex: Male

DRUGS (1)
  1. DIANEAL [Suspect]
     Indication: PERITONEAL DIALYSIS
     Route: 033
     Dates: start: 20080501, end: 20090825

REACTIONS (6)
  - ASTHENIA [None]
  - CEREBROVASCULAR ACCIDENT [None]
  - FALL [None]
  - SUBDURAL HAEMATOMA [None]
  - THERAPY CESSATION [None]
  - UNRESPONSIVE TO STIMULI [None]
